FAERS Safety Report 17741097 (Version 2)
Quarter: 2020Q2

REPORT INFORMATION
  Report Type: Spontaneous
  Country: US (occurrence: US)
  Receive Date: 20200504
  Receipt Date: 20200512
  Transmission Date: 20200714
  Serious: No
  Sender: FDA-Public Use
  Company Number: US-BIOGEN-2019BI00818831

PATIENT
  Age: 70 Year
  Sex: Female
  Weight: 52.66 kg

DRUGS (23)
  1. AVONEX [Suspect]
     Active Substance: INTERFERON BETA-1A
  2. AVONEX [Suspect]
     Active Substance: INTERFERON BETA-1A
  3. AVONEX [Suspect]
     Active Substance: INTERFERON BETA-1A
  4. ARMODAFINIL. [Concomitant]
     Active Substance: ARMODAFINIL
     Route: 065
  5. AVONEX [Suspect]
     Active Substance: INTERFERON BETA-1A
  6. AVONEX [Suspect]
     Active Substance: INTERFERON BETA-1A
  7. FOLIC ACID. [Concomitant]
     Active Substance: FOLIC ACID
     Route: 065
  8. TECFIDERA [Suspect]
     Active Substance: DIMETHYL FUMARATE
     Indication: MULTIPLE SCLEROSIS
     Route: 048
     Dates: start: 20191211, end: 20191218
  9. TYSABRI [Suspect]
     Active Substance: NATALIZUMAB
     Indication: PRODUCT USED FOR UNKNOWN INDICATION
     Route: 042
  10. AVONEX [Suspect]
     Active Substance: INTERFERON BETA-1A
  11. AVONEX [Suspect]
     Active Substance: INTERFERON BETA-1A
  12. AVONEX [Suspect]
     Active Substance: INTERFERON BETA-1A
  13. AVONEX [Suspect]
     Active Substance: INTERFERON BETA-1A
  14. LORAZEPAM. [Concomitant]
     Active Substance: LORAZEPAM
     Route: 065
  15. CENTRUM [Concomitant]
     Active Substance: VITAMINS
     Route: 065
  16. AVONEX [Suspect]
     Active Substance: INTERFERON BETA-1A
  17. AVONEX [Suspect]
     Active Substance: INTERFERON BETA-1A
  18. VITAMIN D [Concomitant]
     Active Substance: VITAMIN D NOS
     Route: 065
  19. AVONEX [Suspect]
     Active Substance: INTERFERON BETA-1A
     Indication: MULTIPLE SCLEROSIS
     Route: 030
     Dates: start: 20010420, end: 20041020
  20. AVONEX [Suspect]
     Active Substance: INTERFERON BETA-1A
  21. TECFIDERA [Suspect]
     Active Substance: DIMETHYL FUMARATE
     Dosage: STARTING DOSE
     Route: 048
     Dates: start: 20191219
  22. SIMVASTATIN. [Concomitant]
     Active Substance: SIMVASTATIN
     Route: 065
  23. CALCIUM [Concomitant]
     Active Substance: CALCIUM
     Route: 065

REACTIONS (18)
  - Dysphagia [Not Recovered/Not Resolved]
  - Dizziness [Not Recovered/Not Resolved]
  - Pruritus [Unknown]
  - Exfoliative rash [Not Recovered/Not Resolved]
  - Lower respiratory tract infection [Not Recovered/Not Resolved]
  - Feeling cold [Not Recovered/Not Resolved]
  - Multiple sclerosis [Unknown]
  - Abdominal pain upper [Unknown]
  - Scratch [Not Recovered/Not Resolved]
  - Cold sweat [Not Recovered/Not Resolved]
  - Dry skin [Not Recovered/Not Resolved]
  - Asthenia [Not Recovered/Not Resolved]
  - Urticaria [Not Recovered/Not Resolved]
  - Product dose omission [Unknown]
  - Constipation [Recovered/Resolved with Sequelae]
  - Hot flush [Not Recovered/Not Resolved]
  - Contusion [Not Recovered/Not Resolved]
  - Irritable bowel syndrome [Unknown]

NARRATIVE: CASE EVENT DATE: 20191214
